FAERS Safety Report 5822261-4 (Version None)
Quarter: 2008Q3

REPORT INFORMATION
  Report Type: 
  Country: None (occurrence: None)
  Receive Date: 20080725
  Receipt Date: 20080714
  Transmission Date: 20090109
  Serious: Yes (Other)
  Sender: FDA-Public Use
  Company Number: IE-ELI_LILLY_AND_COMPANY-IE200801006683

PATIENT
  Age: 34 Year
  Sex: Male

DRUGS (3)
  1. CYMBALTA [Suspect]
     Dosage: 30 MG, DAILY (1/D)
     Route: 065
     Dates: start: 20080301
  2. CYMBALTA [Suspect]
     Dosage: 60 MG, DAILY (1/D)
     Route: 065
  3. INSULIN [Concomitant]
     Indication: TYPE 1 DIABETES MELLITUS
     Dosage: UNK, DAILY (1/D)
     Route: 065

REACTIONS (1)
  - BLOOD GLUCOSE DECREASED [None]
